FAERS Safety Report 17048035 (Version 1)
Quarter: 2019Q4

REPORT INFORMATION
  Report Type: Spontaneous
  Country: DE (occurrence: DE)
  Receive Date: 20191119
  Receipt Date: 20191119
  Transmission Date: 20200122
  Serious: Yes (Other)
  Sender: FDA-Public Use
  Company Number: DE-REGENERON PHARMACEUTICALS, INC.-2019-67120

PATIENT

DRUGS (1)
  1. EYLEA [Suspect]
     Active Substance: AFLIBERCEPT
     Indication: PRODUCT USED FOR UNKNOWN INDICATION
     Dosage: DOSE AND FREQUENCY UNKNOWN; TREATED EYE UNKNOWN; TOTAL NUMBER OF DOSES UNKNOWN
     Dates: start: 20190927

REACTIONS (2)
  - Syncope [Unknown]
  - Thrombosis [Unknown]

NARRATIVE: CASE EVENT DATE: 20190928
